FAERS Safety Report 6215936-9 (Version None)
Quarter: 2009Q2

REPORT INFORMATION
  Report Type: 
  Country: None (occurrence: None)
  Receive Date: 20090605
  Receipt Date: 20090527
  Transmission Date: 20091009
  Serious: Yes (Hospitalization)
  Sender: FDA-Public Use
  Company Number: GB-CELGENEUS-167-C5013-09030103

PATIENT
  Sex: Male
  Weight: 83.3 kg

DRUGS (6)
  1. CC-5013 [Suspect]
     Route: 048
     Dates: start: 20090112
  2. CC-5013 [Suspect]
     Route: 048
     Dates: start: 20090209, end: 20090420
  3. GLICLAZIDE [Suspect]
     Indication: DRUG USE FOR UNKNOWN INDICATION
     Route: 065
  4. WARFARIN [Concomitant]
     Indication: DRUG USE FOR UNKNOWN INDICATION
     Route: 065
  5. DIFFLAM [Concomitant]
     Route: 048
     Dates: start: 20090101
  6. AMLODIPINE [Concomitant]
     Route: 048
     Dates: start: 20090101

REACTIONS (3)
  - ERYTHEMA MULTIFORME [None]
  - MALAISE [None]
  - PULMONARY EMBOLISM [None]
